FAERS Safety Report 7374199 (Version 3)
Quarter: 2015Q4

REPORT INFORMATION
  Report Type: Spontaneous
  Country: US (occurrence: US)
  Receive Date: 20100503
  Receipt Date: 20151023
  Transmission Date: 20160305
  Serious: Yes (Other)
  Sender: FDA-Public Use
  Company Number: US-ASTRAZENECA-2009UW04319

PATIENT
  Age: 26532 Day
  Sex: Female
  Weight: 97.1 kg

DRUGS (8)
  1. NEXIUM [Suspect]
     Active Substance: ESOMEPRAZOLE MAGNESIUM
     Indication: DYSPEPSIA
     Route: 048
     Dates: start: 1999
  2. NEXIUM [Suspect]
     Active Substance: ESOMEPRAZOLE MAGNESIUM
     Indication: DYSPEPSIA
     Dosage: DIISPENSED BY MAIL ORDER
     Route: 048
     Dates: start: 20090105
  3. NEXIUM [Suspect]
     Active Substance: ESOMEPRAZOLE MAGNESIUM
     Indication: GASTROOESOPHAGEAL REFLUX DISEASE
     Route: 048
     Dates: start: 1999
  4. NEXIUM [Suspect]
     Active Substance: ESOMEPRAZOLE MAGNESIUM
     Indication: GASTROOESOPHAGEAL REFLUX DISEASE
     Dosage: DIISPENSED BY MAIL ORDER
     Route: 048
     Dates: start: 20090105
  5. DIOVAN [Concomitant]
     Active Substance: VALSARTAN
     Route: 048
  6. CLINDAMYCIN [Concomitant]
     Active Substance: CLINDAMYCIN\CLINDAMYCIN PHOSPHATE
     Route: 048
     Dates: end: 20090206
  7. NEXIUM [Suspect]
     Active Substance: ESOMEPRAZOLE MAGNESIUM
     Route: 048
  8. ASACOL [Concomitant]
     Active Substance: MESALAMINE
     Route: 048

REACTIONS (11)
  - Diverticulitis [Unknown]
  - Abdominal discomfort [Unknown]
  - Pain [Unknown]
  - Product taste abnormal [Unknown]
  - Liver disorder [Unknown]
  - Nausea [Unknown]
  - Feeling abnormal [Unknown]
  - Abdominal pain upper [Unknown]
  - Product quality issue [Unknown]
  - Colitis ulcerative [Unknown]
  - Retching [Unknown]

NARRATIVE: CASE EVENT DATE: 1999
